FAERS Safety Report 19176442 (Version 1)
Quarter: 2021Q2

REPORT INFORMATION
  Report Type: Report from Study
  Country: US (occurrence: US)
  Receive Date: 20210423
  Receipt Date: 20210423
  Transmission Date: 20210717
  Serious: Yes (Hospitalization)
  Sender: FDA-Public Use
  Company Number: US-TAKEDA-2021TUS001962

PATIENT
  Age: 12 Year
  Sex: Male

DRUGS (13)
  1. PREDNISOLONE. [Concomitant]
     Active Substance: PREDNISOLONE
     Indication: PREMEDICATION
     Dosage: UNK
     Route: 048
     Dates: start: 20080909, end: 200901
  2. IDURSULFASE [Suspect]
     Active Substance: IDURSULFASE
     Dosage: UNK UNK, 1/WEEK
     Route: 042
     Dates: start: 20080708
  3. IDURSULFASE [Suspect]
     Active Substance: IDURSULFASE
     Dosage: UNK, 1/WEEK
     Route: 042
     Dates: start: 20090601
  4. IDURSULFASE [Suspect]
     Active Substance: IDURSULFASE
     Dosage: 0.5 MILLIGRAM/KILOGRAM, 1/WEEK
     Route: 042
     Dates: start: 20091019
  5. EMLA [Concomitant]
     Active Substance: LIDOCAINE\PRILOCAINE
     Indication: PREMEDICATION
     Dosage: UNK
     Route: 062
     Dates: start: 20080721
  6. EPIPEN JR [Concomitant]
     Active Substance: EPINEPHRINE
     Indication: ANAPHYLACTIC REACTION
     Dosage: UNK
     Route: 030
     Dates: start: 20160922
  7. IDURSULFASE [Suspect]
     Active Substance: IDURSULFASE
     Indication: MUCOPOLYSACCHARIDOSIS II
     Dosage: 0.43 MILLIGRAM/KILOGRAM, 1/WEEK
     Route: 042
     Dates: start: 20080423
  8. IDURSULFASE [Suspect]
     Active Substance: IDURSULFASE
     Dosage: UNK UNK, 1/WEEK
     Route: 042
     Dates: start: 20080902
  9. IDURSULFASE [Suspect]
     Active Substance: IDURSULFASE
     Dosage: 0.43 MILLIGRAM/KILOGRAM
     Route: 042
     Dates: start: 20080908, end: 20090323
  10. TYLENOL [Concomitant]
     Active Substance: ACETAMINOPHEN
     Indication: PREMEDICATION
     Dosage: UNK
     Route: 048
     Dates: start: 20080721
  11. IDURSULFASE [Suspect]
     Active Substance: IDURSULFASE
     Dosage: 0.49 MILLIGRAM/KILOGRAM
     Route: 042
     Dates: start: 20100920
  12. IDURSULFASE [Suspect]
     Active Substance: IDURSULFASE
     Dosage: 2 MILLIGRAM PER MILLILITRE
     Route: 042
     Dates: start: 20160922
  13. DIPHENHYDRAMINE. [Concomitant]
     Active Substance: DIPHENHYDRAMINE
     Indication: PREMEDICATION
     Dosage: UNK
     Route: 048
     Dates: start: 20080721

REACTIONS (2)
  - Catheter site pain [Recovered/Resolved]
  - Urticaria [Recovered/Resolved]

NARRATIVE: CASE EVENT DATE: 20080902
